FAERS Safety Report 8793749 (Version 1)
Quarter: 2012Q4

REPORT INFORMATION
  Report Type: 
  Country: US (occurrence: US)
  Receive Date: 20120917
  Receipt Date: 20120917
  Transmission Date: 20130627
  Serious: No
  Sender: FDA-Public Use
  Company Number: US-VERTEX PHARMACEUTICAL INC.-2012-019768

PATIENT
  Weight: 84 kg

DRUGS (6)
  1. VX-950 [Suspect]
     Indication: HEPATITIS C
     Dosage: 750 mg, UNK
     Route: 048
     Dates: start: 201206, end: 201209
  2. RIBASPHERE [Concomitant]
     Indication: HEPATITIS C
     Dosage: 600 mg, UNK
     Route: 048
     Dates: start: 201206
  3. RIBASPHERE [Concomitant]
     Dosage: UNK mg, UNK
     Route: 048
  4. PEGASYS [Concomitant]
     Indication: HEPATITIS C
     Dosage: 180 ?g, UNK
     Route: 058
     Dates: start: 201206
  5. AMLODIPINE BESYLATE [Concomitant]
     Dosage: 5 mg, UNK
     Route: 048
     Dates: start: 20120518
  6. LOSARTAN POTASSIUM [Concomitant]
     Dosage: 100 mg, UNK
     Route: 048
     Dates: start: 20120518

REACTIONS (5)
  - Varicose vein [Unknown]
  - Cough [Unknown]
  - Rash [Unknown]
  - Anaemia [Unknown]
  - Pruritus [Unknown]
